FAERS Safety Report 6357726-2 (Version None)
Quarter: 2009Q3

REPORT INFORMATION
  Report Type: 
  Country: None (occurrence: None)
  Receive Date: 20090916
  Receipt Date: 20090914
  Transmission Date: 20100115
  Serious: Yes (Other)
  Sender: FDA-Public Use
  Company Number: US-BRISTOL-MYERS SQUIBB COMPANY-14779219

PATIENT
  Age: 58 Year
  Sex: Male

DRUGS (1)
  1. MAXIPIME [Suspect]

REACTIONS (2)
  - HYPOAESTHESIA [None]
  - VISION BLURRED [None]
